FAERS Safety Report 17558533 (Version 1)
Quarter: 2020Q1

REPORT INFORMATION
  Report Type: Spontaneous
  Country: US (occurrence: US)
  Receive Date: 20200318
  Receipt Date: 20200318
  Transmission Date: 20200409
  Serious: Yes (Hospitalization)
  Sender: FDA-Public Use
  Company Number: US-ANIPHARMA-2020-US-004916

PATIENT
  Age: 54 Year
  Sex: Female

DRUGS (2)
  1. SULFAMETHOXAZOLE + TRIMETHOPRIM (NON-SPECIFIC) [Suspect]
     Active Substance: SULFAMETHOXAZOLE\TRIMETHOPRIM
     Indication: SINUSITIS
     Dosage: 160 MG TWICE DAILY
  2. ANIMAL THYROID EXTRACT [Concomitant]

REACTIONS (1)
  - Hyponatraemia [Recovered/Resolved]
